FAERS Safety Report 19449761 (Version 1)
Quarter: 2021Q2

REPORT INFORMATION
  Report Type: Report from Study
  Country: KZ (occurrence: KZ)
  Receive Date: 20210622
  Receipt Date: 20210622
  Transmission Date: 20210717
  Serious: Yes (Other)
  Sender: FDA-Public Use
  Company Number: KZ-JNJFOC-20210646486

PATIENT
  Age: 62 Year
  Sex: Male

DRUGS (3)
  1. CORONAL [AMIODARONE HYDROCHLORIDE] [Concomitant]
     Active Substance: AMIODARONE HYDROCHLORIDE
  2. CORDARON [Concomitant]
     Active Substance: AMIODARONE HYDROCHLORIDE
  3. RIVAROXABAN [Suspect]
     Active Substance: RIVAROXABAN
     Indication: ATRIAL FIBRILLATION
     Dosage: UNK
     Route: 048
     Dates: start: 2017, end: 2018

REACTIONS (2)
  - Blood pressure increased [Unknown]
  - Heart rate increased [Unknown]
